FAERS Safety Report 21935124 (Version 1)
Quarter: 2023Q1

REPORT INFORMATION
  Report Type: Spontaneous
  Country: CN (occurrence: CN)
  Receive Date: 20230201
  Receipt Date: 20230201
  Transmission Date: 20230417
  Serious: Yes (Hospitalization, Other)
  Sender: FDA-Public Use
  Company Number: CN-ABBVIE-4290309

PATIENT
  Age: 54 Year
  Sex: Female
  Weight: 55 kg

DRUGS (6)
  1. VENCLEXTA [Suspect]
     Active Substance: VENETOCLAX
     Indication: Acute monocytic leukaemia
     Dosage: DAY 2
     Route: 048
     Dates: start: 20221213, end: 20221213
  2. VENCLEXTA [Suspect]
     Active Substance: VENETOCLAX
     Indication: Acute monocytic leukaemia
     Dosage: DAY 3
     Route: 048
     Dates: start: 20221214, end: 20221214
  3. VENCLEXTA [Suspect]
     Active Substance: VENETOCLAX
     Indication: Acute monocytic leukaemia
     Dosage: DAY 4
     Route: 048
     Dates: start: 20221215, end: 20221215
  4. VENCLEXTA [Suspect]
     Active Substance: VENETOCLAX
     Indication: Acute monocytic leukaemia
     Dosage: DAY 1
     Route: 048
     Dates: start: 20221212, end: 20221212
  5. VENCLEXTA [Suspect]
     Active Substance: VENETOCLAX
     Indication: Acute monocytic leukaemia
     Dosage: UNKNOWN DOSE
     Route: 048
     Dates: start: 20221216, end: 20221231
  6. AZACITIDINE [Suspect]
     Active Substance: AZACITIDINE
     Indication: Acute monocytic leukaemia
     Dosage: 100 MG,IVGTT,IH
     Route: 058
     Dates: start: 20221212, end: 20221215

REACTIONS (2)
  - Myelosuppression [Recovering/Resolving]
  - Acute monocytic leukaemia [Unknown]

NARRATIVE: CASE EVENT DATE: 20221222
